FAERS Safety Report 5064438-4 (Version None)
Quarter: 2006Q3

REPORT INFORMATION
  Report Type: 
  Country: None (occurrence: None)
  Receive Date: 20060726
  Receipt Date: 20060712
  Transmission Date: 20061208
  Serious: Yes (Hospitalization, Other)
  Sender: FDA-Public Use
  Company Number: 2006041944

PATIENT
  Age: 63 Year
  Sex: Female

DRUGS (2)
  1. BEXTRA [Suspect]
     Indication: ARTHRITIS
     Dosage: 20 MG (10 MG, 1 IN 1 D), ORAL
     Route: 048
     Dates: start: 20050308, end: 20050313
  2. CENTRUM SILVER (ASCORBIC ACID, CALCIUM, MINERALS NOS, RETINOL, TOCOPHE [Concomitant]

REACTIONS (5)
  - DIZZINESS POSTURAL [None]
  - ERYTHEMA MULTIFORME [None]
  - HEADACHE [None]
  - PAIN [None]
  - TACHYCARDIA [None]
